FAERS Safety Report 4715587-9 (Version None)
Quarter: 2005Q3

REPORT INFORMATION
  Report Type: 
  Country: None (occurrence: None)
  Receive Date: 20050713
  Receipt Date: 20050324
  Transmission Date: 20060218
  Serious: Yes (Hospitalization, Other)
  Sender: FDA-Public Use
  Company Number: 2005FR-00087

PATIENT
  Age: 59 Year
  Sex: Male

DRUGS (5)
  1. METFORMIN [Suspect]
     Indication: DIABETES MELLITUS NON-INSULIN-DEPENDENT
     Dosage: 850MG BD, 500MG ON, ORAL
     Route: 048
     Dates: end: 20050307
  2. INDOMETHACIN [Concomitant]
  3. FLUCLOXACILLIN [Concomitant]
  4. BANZYLPENICILLIN [Concomitant]
  5. GLICLAZIDE [Concomitant]

REACTIONS (7)
  - BODY TEMPERATURE DECREASED [None]
  - DYSARTHRIA [None]
  - FEELING COLD [None]
  - METABOLIC ACIDOSIS [None]
  - POSTOPERATIVE INFECTION [None]
  - RENAL FAILURE ACUTE [None]
  - TOE AMPUTATION [None]
